FAERS Safety Report 17570437 (Version 3)
Quarter: 2020Q2

REPORT INFORMATION
  Report Type: Report from Study
  Country: None (occurrence: CA)
  Receive Date: 20200323
  Receipt Date: 20200413
  Transmission Date: 20200713
  Serious: Yes (Hospitalization)
  Sender: FDA-Public Use
  Company Number: CA-ABBVIE-20K-028-3306103-00

PATIENT
  Sex: Female

DRUGS (2)
  1. HUMIRA [Suspect]
     Active Substance: ADALIMUMAB
     Route: 058
  2. HUMIRA [Suspect]
     Active Substance: ADALIMUMAB
     Indication: CROHN^S DISEASE
     Route: 058
     Dates: start: 20190329

REACTIONS (7)
  - Labour complication [Unknown]
  - Premature labour [Recovered/Resolved]
  - Constipation [Not Recovered/Not Resolved]
  - Arrested labour [Not Recovered/Not Resolved]
  - Premature labour [Recovered/Resolved]
  - Maternal exposure during pregnancy [Unknown]
  - Morning sickness [Not Recovered/Not Resolved]

NARRATIVE: CASE EVENT DATE: 2020
